FAERS Safety Report 16145798 (Version 1)
Quarter: 2019Q2

REPORT INFORMATION
  Report Type: Spontaneous
  Country: US (occurrence: US)
  Receive Date: 20190227
  Receipt Date: 20190227
  Transmission Date: 20190711
  Serious: Yes (Death)
  Sender: FDA-Public Use
  Company Number: None

PATIENT
  Age: 11 Year
  Sex: Female

DRUGS (16)
  1. AMOXICILLIN. [Concomitant]
     Active Substance: AMOXICILLIN
  2. MAPAP [Concomitant]
     Active Substance: ACETAMINOPHEN
  3. TRANEX [Concomitant]
     Active Substance: TRANEXAMIC ACID
  4. TAMIFLU [Concomitant]
     Active Substance: OSELTAMIVIR PHOSPHATE
  5. NITROFUR MAC [Concomitant]
     Active Substance: NITROFURANTOIN
  6. NEUPOGEN [Suspect]
     Active Substance: FILGRASTIM
     Indication: NEUTROPENIA
     Route: 058
     Dates: start: 20160802
  7. NYSTATIN. [Concomitant]
     Active Substance: NYSTATIN
  8. DIAZEPAM. [Concomitant]
     Active Substance: DIAZEPAM
  9. GABAPENTIN. [Concomitant]
     Active Substance: GABAPENTIN
  10. LEVETIRACETA [Concomitant]
  11. OXYCODONE [Concomitant]
     Active Substance: OXYCODONE
  12. VIMPAT [Concomitant]
     Active Substance: LACOSAMIDE
  13. AMOX/K CLAV [Concomitant]
     Active Substance: AMOXICILLIN\CLAVULANATE POTASSIUM
  14. MUPIROCIN. [Concomitant]
     Active Substance: MUPIROCIN
  15. ONDANSETRON [Concomitant]
     Active Substance: ONDANSETRON
  16. ZONISAMIDE. [Concomitant]
     Active Substance: ZONISAMIDE

REACTIONS (1)
  - Death [None]

NARRATIVE: CASE EVENT DATE: 20190207
